FAERS Safety Report 5191913-4 (Version None)
Quarter: 2006Q4

REPORT INFORMATION
  Report Type: 
  Country: None (occurrence: None)
  Receive Date: 20061227
  Receipt Date: 19970611
  Transmission Date: 20070319
  Serious: Yes (Life-Threatening)
  Sender: FDA-Public Use
  Company Number: D/97/01736/LAS

PATIENT
  Age: 50 Year
  Sex: Male
  Weight: 86 kg

DRUGS (2)
  1. LAMISIL [Suspect]
     Indication: ONYCHOMYCOSIS
     Route: 048
     Dates: start: 19970301, end: 19970501
  2. BETA BLOCKER [Concomitant]
     Dosage: UNSPECIFIED
     Route: 065

REACTIONS (3)
  - LYMPHADENOPATHY [None]
  - NON-HODGKIN'S LYMPHOMA [None]
  - SPLENOMEGALY [None]
